FAERS Safety Report 16646952 (Version 1)
Quarter: 2019Q3

REPORT INFORMATION
  Report Type: Other
  Country: CA (occurrence: CA)
  Receive Date: 20190730
  Receipt Date: 20190730
  Transmission Date: 20191004
  Serious: Yes (Other)
  Sender: FDA-Public Use
  Company Number: CA-PFIZER INC-2019321817

PATIENT
  Sex: Female

DRUGS (4)
  1. WARFARIN [Suspect]
     Active Substance: WARFARIN
     Indication: SUPERIOR SAGITTAL SINUS THROMBOSIS
     Dosage: 5 MG, UNK
  2. WARFARIN [Suspect]
     Active Substance: WARFARIN
     Indication: FACTOR V LEIDEN MUTATION
  3. FRAGMIN [Suspect]
     Active Substance: DALTEPARIN SODIUM
     Indication: SUPERIOR SAGITTAL SINUS THROMBOSIS
     Dosage: 5000 UNK, UNK
  4. FRAGMIN [Suspect]
     Active Substance: DALTEPARIN SODIUM
     Indication: FACTOR V LEIDEN MUTATION

REACTIONS (1)
  - Abortion induced [Unknown]
